FAERS Safety Report 9845223 (Version 1)
Quarter: 2014Q1

REPORT INFORMATION
  Report Type: Spontaneous
  Country: US (occurrence: None)
  Receive Date: 20140123
  Receipt Date: 20140123
  Transmission Date: 20141002
  Serious: Yes (Other)
  Sender: FDA-Public Use
  Company Number: None

PATIENT
  Age: 19 Year
  Sex: Female
  Weight: 52.62 kg

DRUGS (1)
  1. DEPO PROVERA [Suspect]
     Dosage: EVERY 3 MONTHS ?INTO THE MUSCLE

REACTIONS (1)
  - Muscle atrophy [None]
